FAERS Safety Report 5132797-X (Version None)
Quarter: 2006Q4

REPORT INFORMATION
  Report Type: 
  Country: None (occurrence: None)
  Receive Date: 20061023
  Receipt Date: 20061018
  Transmission Date: 20070319
  Serious: Yes (Life-Threatening, Hospitalization)
  Sender: FDA-Public Use
  Company Number: DE-MERCK-0610DEU00072

PATIENT

DRUGS (1)
  1. HYZAAR [Suspect]
     Route: 048
     Dates: start: 20060101, end: 20061007

REACTIONS (1)
  - PANCREATITIS ACUTE [None]
